FAERS Safety Report 16464879 (Version 1)
Quarter: 2019Q2

REPORT INFORMATION
  Report Type: Spontaneous
  Country: JP (occurrence: JP)
  Receive Date: 20190621
  Receipt Date: 20190621
  Transmission Date: 20190711
  Serious: Yes (Other)
  Sender: FDA-Public Use
  Company Number: GXJP2019JP001150

PATIENT
  Age: 55 Year
  Sex: Female

DRUGS (4)
  1. CALCIUM LEVOFOLINATE OR INTRAVENOUS INFUSION [Suspect]
     Active Substance: LEVOLEUCOVORIN CALCIUM
     Indication: PANCREATIC CARCINOMA
     Dosage: UNK
     Route: 065
     Dates: start: 20181010
  2. IRINOTECAN HYDROCHLORIDE. [Suspect]
     Active Substance: IRINOTECAN HYDROCHLORIDE
     Indication: PANCREATIC CARCINOMA
     Dosage: UNK
     Route: 065
     Dates: start: 20181010
  3. OXALIPLATIN INTRAVENOUS INFUSION [Suspect]
     Active Substance: OXALIPLATIN
     Indication: PANCREATIC CARCINOMA
     Dosage: 85 MG, QD
     Route: 041
     Dates: start: 20181010
  4. FLUOROURACIL. [Suspect]
     Active Substance: FLUOROURACIL
     Indication: PANCREATIC CARCINOMA
     Dosage: UNK
     Route: 065
     Dates: start: 20181010

REACTIONS (1)
  - Neuropathy peripheral [Not Recovered/Not Resolved]

NARRATIVE: CASE EVENT DATE: 201903
